FAERS Safety Report 13628856 (Version 1)
Quarter: 2017Q2

REPORT INFORMATION
  Report Type: Spontaneous
  Country: US (occurrence: US)
  Receive Date: 20170607
  Receipt Date: 20170607
  Transmission Date: 20170830
  Serious: No
  Sender: FDA-Public Use
  Company Number: US-PFIZER INC-2017239518

PATIENT
  Age: 52 Year
  Sex: Female

DRUGS (15)
  1. VITAMIN C [Concomitant]
     Active Substance: ASCORBIC ACID
     Dosage: UNK, REGULARLY
     Dates: start: 200802
  2. NITROQUICK [Concomitant]
     Active Substance: NITROGLYCERIN
     Dosage: UNK, REGULARLY
     Dates: start: 200802
  3. DOCETAXEL. [Suspect]
     Active Substance: DOCETAXEL
     Indication: CHEMOTHERAPY
     Dosage: UNK
  4. ATENOLOL. [Concomitant]
     Active Substance: ATENOLOL
     Dosage: UNK, REGULARLY
     Dates: start: 200802
  5. REQUIP [Concomitant]
     Active Substance: ROPINIROLE HYDROCHLORIDE
     Dosage: UNK, REGULARLY
     Dates: start: 200802
  6. DOCETAXEL. [Suspect]
     Active Substance: DOCETAXEL
     Indication: BREAST CANCER FEMALE
  7. PROMETHAZINE [Concomitant]
     Active Substance: PROMETHAZINE\PROMETHAZINE HYDROCHLORIDE
     Dosage: UNK, REGULARLY
     Dates: start: 200802
  8. CLONIDINE. [Concomitant]
     Active Substance: CLONIDINE
     Dosage: UNK, REGULARLY
     Dates: start: 200802
  9. KETOPROFEN. [Concomitant]
     Active Substance: KETOPROFEN
     Dosage: UNK, REGULARLY
     Dates: start: 20080226
  10. OXYBUTYNIN [Concomitant]
     Active Substance: OXYBUTYNIN
     Dosage: UNK, REGULARLY
     Dates: start: 200802
  11. SERTRALINE [Concomitant]
     Active Substance: SERTRALINE HYDROCHLORIDE
     Dosage: UNK, REGULARLY
     Dates: start: 200801
  12. GLYBURIDE. [Concomitant]
     Active Substance: GLYBURIDE
     Dosage: UNK, REGULARLY
     Dates: start: 200802
  13. FERROUS SULFATE. [Concomitant]
     Active Substance: FERROUS SULFATE
     Dosage: UNK, REGULARLY
     Dates: start: 20080226
  14. LIPITOR [Concomitant]
     Active Substance: ATORVASTATIN CALCIUM
     Dosage: UNK, REGULARLY
     Dates: start: 200802
  15. METOCLOPRAMIDE. [Concomitant]
     Active Substance: METOCLOPRAMIDE
     Dosage: UNK, REGULARLY
     Dates: start: 200802

REACTIONS (5)
  - Hair texture abnormal [Unknown]
  - Madarosis [Unknown]
  - Hair colour changes [Unknown]
  - Alopecia [Recovered/Resolved]
  - Hair disorder [Unknown]

NARRATIVE: CASE EVENT DATE: 2008
